FAERS Safety Report 6955030-2 (Version None)
Quarter: 2010Q3

REPORT INFORMATION
  Report Type: 
  Country: None (occurrence: None)
  Receive Date: 20100830
  Receipt Date: 20100820
  Transmission Date: 20110219
  Serious: Yes (Hospitalization, Other)
  Sender: FDA-Public Use
  Company Number: GB-NOVOPROD-309598

PATIENT
  Age: 51 Year
  Sex: Male
  Weight: 117.9 kg

DRUGS (5)
  1. VICTOZA [Suspect]
     Indication: TYPE 2 DIABETES MELLITUS
     Dosage: UNK MG, QD
     Route: 058
     Dates: start: 20090930
  2. VICTOZA [Suspect]
     Indication: OBESITY
     Dosage: 1.2 MG, QD
     Route: 058
     Dates: end: 20100508
  3. VICTOZA [Suspect]
     Dosage: UNK
     Dates: start: 20100608
  4. METFORMIN [Concomitant]
     Indication: PRODUCT USED FOR UNKNOWN INDICATION
  5. ROSIGLITAZONE [Concomitant]
     Indication: PRODUCT USED FOR UNKNOWN INDICATION

REACTIONS (3)
  - AUTONOMIC NEUROPATHY [None]
  - OFF LABEL USE [None]
  - SYNCOPE [None]
